FAERS Safety Report 6803544-8 (Version None)
Quarter: 2010Q2

REPORT INFORMATION
  Report Type: 
  Country: None (occurrence: None)
  Receive Date: 20100628
  Receipt Date: 20100521
  Transmission Date: 20101027
  Serious: Yes (Other)
  Sender: FDA-Public Use
  Company Number: US-MERCK-1005USA04015

PATIENT
  Age: 5 Year
  Sex: Male

DRUGS (3)
  1. SINGULAIR [Suspect]
     Indication: ASTHMA
     Route: 048
  2. SINGULAIR [Suspect]
     Indication: SEASONAL ALLERGY
     Route: 048
  3. ALBUTEROL [Concomitant]
     Indication: SEASONAL ALLERGY
     Route: 065

REACTIONS (7)
  - AFFECT LABILITY [None]
  - AGGRESSION [None]
  - INTENTIONAL SELF-INJURY [None]
  - MOOD ALTERED [None]
  - PERSONALITY CHANGE [None]
  - PSYCHOMOTOR HYPERACTIVITY [None]
  - SELF ESTEEM DECREASED [None]
